FAERS Safety Report 7934766-0 (Version None)
Quarter: 2011Q4

REPORT INFORMATION
  Report Type: 
  Country: None (occurrence: None)
  Receive Date: 20111122
  Receipt Date: 20111109
  Transmission Date: 20120403
  Serious: Yes (Death, Life-Threatening)
  Sender: FDA-Public Use
  Company Number: JP-ACTELION-A-JP2009-25388

PATIENT
  Sex: Female
  Weight: 67 kg

DRUGS (16)
  1. CHLORPROMAZINE [Concomitant]
  2. ETIZOLAM [Concomitant]
  3. MAGNESIUM OXIDE [Concomitant]
  4. CILNIDIPINE [Concomitant]
  5. CARVEDILOL [Concomitant]
  6. SULPIRIDE [Concomitant]
  7. PAROXETINE HCL [Concomitant]
  8. FUROSEMIDE [Concomitant]
  9. FAMOTIDINE [Concomitant]
  10. RILMAZAFONE [Concomitant]
  11. TRACLEER [Suspect]
     Dosage: 62.5 MG, BID
     Route: 048
     Dates: start: 20071202, end: 20080213
  12. KETOPROFEN [Concomitant]
  13. OXYGEN [Concomitant]
  14. TRACLEER [Suspect]
     Indication: PULMONARY ARTERIAL HYPERTENSION
     Dosage: 125 MG, BID
     Route: 048
     Dates: start: 20090214, end: 20090530
  15. ISOSORBIDE DINITRATE [Concomitant]
  16. CARBOCISTEINE [Concomitant]

REACTIONS (11)
  - FALL [None]
  - SURGERY [None]
  - RESPIRATORY DISORDER [None]
  - PYREXIA [None]
  - ENDOTRACHEAL INTUBATION [None]
  - CONVULSION [None]
  - BRAIN OEDEMA [None]
  - PNEUMONIA [None]
  - TRAUMATIC INTRACRANIAL HAEMORRHAGE [None]
  - PUPILS UNEQUAL [None]
  - SUBARACHNOID HAEMORRHAGE [None]
